FAERS Safety Report 18887771 (Version 2)
Quarter: 2021Q1

REPORT INFORMATION
  Report Type: Report from Study
  Country: BR (occurrence: BR)
  Receive Date: 20210213
  Receipt Date: 20210220
  Transmission Date: 20210420
  Serious: Yes (Other)
  Sender: FDA-Public Use
  Company Number: BR-AMGEN-BRACT2021023254

PATIENT
  Age: 41 Year
  Sex: Female

DRUGS (1)
  1. PASURTA [Suspect]
     Active Substance: ERENUMAB
     Indication: MIGRAINE
     Dosage: UNK
     Route: 065
     Dates: start: 20201222, end: 20201222

REACTIONS (15)
  - Haematochezia [Unknown]
  - Gastrointestinal disorder [Unknown]
  - Headache [Recovering/Resolving]
  - Stress [Unknown]
  - Faecaloma [Unknown]
  - Hypoaesthesia [Recovered/Resolved]
  - Dyschezia [Unknown]
  - Feeling abnormal [Recovered/Resolved]
  - Head discomfort [Recovered/Resolved]
  - Adverse event [Unknown]
  - Gastrointestinal hypomotility [Recovered/Resolved]
  - Drug ineffective [Unknown]
  - Constipation [Recovered/Resolved]
  - Hypoaesthesia eye [Recovered/Resolved]
  - Ear discomfort [Recovered/Resolved]

NARRATIVE: CASE EVENT DATE: 20201222
